FAERS Safety Report 20073593 (Version 4)
Quarter: 2022Q1

REPORT INFORMATION
  Report Type: Report from Study
  Country: ES (occurrence: None)
  Receive Date: 20211116
  Receipt Date: 20220207
  Transmission Date: 20220423
  Serious: Yes (Hospitalization)
  Sender: FDA-Public Use
  Company Number: ES-Eisai Medical Research-EC-2021-103160

PATIENT
  Age: 60 Year
  Sex: Male
  Weight: 103 kg

DRUGS (25)
  1. LENVATINIB [Suspect]
     Active Substance: LENVATINIB
     Indication: Renal cell carcinoma
     Route: 048
     Dates: start: 20210826, end: 20211025
  2. LENVATINIB [Suspect]
     Active Substance: LENVATINIB
     Route: 048
     Dates: start: 20211029, end: 20211106
  3. FAVEZELIMAB [Suspect]
     Active Substance: FAVEZELIMAB
     Indication: Renal cell carcinoma
     Dosage: 1000 MG MK-4280A CONTAINS 800 MG OF MK-4280 AND 200 MG OF PEMBROLIZUMAB MK-3475
     Dates: start: 20210826, end: 20210923
  4. FAVEZELIMAB [Suspect]
     Active Substance: FAVEZELIMAB
     Dosage: 1000 MG MK-4280A CONTAINS 800 MG OF MK-4280 AND 200 MG OF PEMBROLIZUMAB MK-3475
     Dates: start: 20211021, end: 20211021
  5. METOCLOPRAMIDE [Concomitant]
     Active Substance: METOCLOPRAMIDE
     Dates: start: 20210903, end: 20211106
  6. ACETAMINOPHEN [Concomitant]
     Active Substance: ACETAMINOPHEN
     Dates: start: 20210908, end: 20211026
  7. ACETAMINOPHEN [Concomitant]
     Active Substance: ACETAMINOPHEN
     Dates: start: 20211029, end: 20211106
  8. ACETAMINOPHEN [Concomitant]
     Active Substance: ACETAMINOPHEN
     Route: 042
     Dates: start: 20211026, end: 20211026
  9. ABSTRAL [Concomitant]
     Active Substance: FENTANYL CITRATE
     Dates: start: 20210908, end: 20211026
  10. ABSTRAL [Concomitant]
     Active Substance: FENTANYL CITRATE
     Dates: start: 20211029, end: 20211106
  11. MORPHINE SULFATE [Concomitant]
     Active Substance: MORPHINE SULFATE
     Dates: start: 20210910, end: 20211026
  12. MAGNESIUM [Concomitant]
     Active Substance: MAGNESIUM
     Dates: start: 20211006, end: 20211025
  13. NOVORAPID [Concomitant]
     Active Substance: INSULIN ASPART
     Route: 058
     Dates: start: 20211026, end: 20211027
  14. DEXAMETHASONE [Concomitant]
     Active Substance: DEXAMETHASONE
     Route: 042
     Dates: start: 20211026, end: 20211028
  15. DEXAMETHASONE [Concomitant]
     Active Substance: DEXAMETHASONE
     Dates: start: 20211029, end: 20211029
  16. MORPHINE [Concomitant]
     Active Substance: MORPHINE
     Route: 042
     Dates: start: 20211026, end: 20211029
  17. MORPHINE [Concomitant]
     Active Substance: MORPHINE
     Dates: start: 20211029, end: 20211106
  18. MAGNESIUM HYDROXIDE [Concomitant]
     Active Substance: MAGNESIUM HYDROXIDE
     Dates: start: 20211026, end: 20211027
  19. MAGNESIUM HYDROXIDE [Concomitant]
     Active Substance: MAGNESIUM HYDROXIDE
     Dates: start: 20211029
  20. FONDAPARINUX SODIUM [Concomitant]
     Active Substance: FONDAPARINUX SODIUM
     Route: 058
     Dates: start: 20211027, end: 20211027
  21. PANTOPRAZOLE [Concomitant]
     Active Substance: PANTOPRAZOLE
     Route: 042
     Dates: start: 20211027, end: 20211028
  22. OMEPRAZOLE [Concomitant]
     Active Substance: OMEPRAZOLE
     Dates: start: 20211029, end: 20211106
  23. LEVOFLOXACIN [Concomitant]
     Active Substance: LEVOFLOXACIN
     Dates: start: 202111
  24. PEMBROLIZUMAB [Suspect]
     Active Substance: PEMBROLIZUMAB
  25. PEMBROLIZUMAB [Suspect]
     Active Substance: PEMBROLIZUMAB

REACTIONS (1)
  - Segmental diverticular colitis [Recovered/Resolved]

NARRATIVE: CASE EVENT DATE: 20211107
